FAERS Safety Report 6849920-9 (Version None)
Quarter: 2010Q3

REPORT INFORMATION
  Report Type: 
  Country: None (occurrence: None)
  Receive Date: 20100716
  Receipt Date: 20071005
  Transmission Date: 20110219
  Serious: No
  Sender: FDA-Public Use
  Company Number: US-PFIZER INC-2007085636

PATIENT
  Sex: Female

DRUGS (4)
  1. CHANTIX [Suspect]
     Indication: SMOKING CESSATION THERAPY
     Route: 048
     Dates: start: 20070901
  2. MONTELUKAST SODIUM [Concomitant]
  3. LIPITOR [Concomitant]
  4. LOTREL [Concomitant]

REACTIONS (1)
  - NAUSEA [None]
